FAERS Safety Report 19591315 (Version 2)
Quarter: 2021Q3

REPORT INFORMATION
  Report Type: Report from Study
  Country: None (occurrence: US)
  Receive Date: 20210722
  Receipt Date: 20210923
  Transmission Date: 20211014
  Serious: Yes (Other)
  Sender: FDA-Public Use
  Company Number: US-ABBVIE-21K-163-3998075-00

PATIENT
  Sex: Female

DRUGS (1)
  1. HUMIRA [Suspect]
     Active Substance: ADALIMUMAB
     Indication: PSORIASIS
     Dosage: CF
     Route: 058

REACTIONS (7)
  - Skin burning sensation [Recovered/Resolved]
  - Skin erosion [Recovered/Resolved]
  - Rash macular [Recovered/Resolved]
  - Unevaluable event [Recovering/Resolving]
  - Post procedural complication [Unknown]
  - Fall [Recovering/Resolving]
  - Cervical vertebral fracture [Recovering/Resolving]

NARRATIVE: CASE EVENT DATE: 2020
